FAERS Safety Report 23867910 (Version 1)
Quarter: 2024Q2

REPORT INFORMATION
  Report Type: Spontaneous
  Country: PT (occurrence: PT)
  Receive Date: 20240517
  Receipt Date: 20240517
  Transmission Date: 20240716
  Serious: Yes (Other)
  Sender: FDA-Public Use
  Company Number: PT-ELI_LILLY_AND_COMPANY-PT202405005500

PATIENT
  Age: 62 Year
  Sex: Male

DRUGS (1)
  1. EMGALITY [Suspect]
     Active Substance: GALCANEZUMAB-GNLM
     Indication: Cluster headache
     Dosage: UNK UNK, UNKNOWN
     Route: 065

REACTIONS (4)
  - Neuroendocrine tumour of the lung [Unknown]
  - Seizure [Unknown]
  - Off label use [Unknown]
  - Therapy partial responder [Unknown]
